FAERS Safety Report 15616193 (Version 1)
Quarter: 2018Q4

REPORT INFORMATION
  Report Type: Spontaneous
  Country: US (occurrence: US)
  Receive Date: 20181108
  Receipt Date: 20181108
  Transmission Date: 20190205
  Serious: No
  Sender: FDA-Public Use
  Company Number: None

PATIENT
  Age: 63 Year
  Sex: Female

DRUGS (3)
  1. EPCLUSA [Suspect]
     Active Substance: SOFOSBUVIR\VELPATASVIR
     Indication: HEPATITIS C
     Dates: start: 201801, end: 201803
  2. B COMPLETEX VITAMIN [Concomitant]
  3. CLARITIN [Concomitant]
     Active Substance: LORATADINE

REACTIONS (1)
  - Treatment failure [None]

NARRATIVE: CASE EVENT DATE: 20180601
